FAERS Safety Report 8460633-2 (Version None)
Quarter: 2012Q2

REPORT INFORMATION
  Report Type: 
  Country: None (occurrence: None)
  Receive Date: 20120622
  Receipt Date: 20120614
  Transmission Date: 20120825
  Serious: No
  Sender: FDA-Public Use
  Company Number: US-ASTRAZENECA-2012SE39855

PATIENT
  Age: 71 Year
  Sex: Female
  Weight: 90.3 kg

DRUGS (5)
  1. BENICAR [Concomitant]
     Indication: BLOOD PRESSURE
  2. CLONIDINE [Concomitant]
  3. ARIMIDEX [Suspect]
     Indication: BREAST CANCER
     Route: 048
     Dates: start: 20090505
  4. EFFEXOR [Concomitant]
  5. SINGULAIR [Concomitant]
     Indication: ASTHMA

REACTIONS (2)
  - ALOPECIA [None]
  - OFF LABEL USE [None]
